FAERS Safety Report 8507930-X (Version None)
Quarter: 2012Q3

REPORT INFORMATION
  Report Type: 
  Country: None (occurrence: None)
  Receive Date: 20120709
  Receipt Date: 20120709
  Transmission Date: 20120928
  Serious: No
  Sender: FDA-Public Use
  Company Number: None

PATIENT
  Age: 34 Year
  Weight: 104.3273 kg

DRUGS (1)
  1. ASPIRIN [Suspect]
     Indication: HEADACHE
     Dosage: 2 PILLS VERY RARELY PO
     Route: 048
     Dates: start: 20120706, end: 20120706

REACTIONS (7)
  - PRODUCT PACKAGING ISSUE [None]
  - THROAT IRRITATION [None]
  - PRODUCT ODOUR ABNORMAL [None]
  - TABLET PHYSICAL ISSUE [None]
  - DYSPEPSIA [None]
  - PRODUCT LABEL ISSUE [None]
  - PRODUCT COATING ISSUE [None]
